FAERS Safety Report 23347175 (Version 1)
Quarter: 2023Q4

REPORT INFORMATION
  Report Type: Spontaneous
  Country: US (occurrence: None)
  Receive Date: 20231227
  Receipt Date: 20231227
  Transmission Date: 20240109
  Serious: Yes (Death)
  Sender: FDA-Public Use
  Company Number: None

PATIENT
  Age: 39 Year
  Sex: Male

DRUGS (3)
  1. TIVICAY [Suspect]
     Active Substance: DOLUTEGRAVIR SODIUM
     Indication: HIV infection
     Dosage: 50MG 1 TABLET BID BY MOUTH
     Route: 048
     Dates: start: 20230912
  2. EMTRICITABINE AND TENOFOVIR DISOPROXIL FUMARATE [Suspect]
     Active Substance: EMTRICITABINE\TENOFOVIR DISOPROXIL FUMARATE
     Indication: HIV infection
     Dosage: 200/300MG 1 TABLET QD BY MOUTH? ?
     Route: 048
     Dates: start: 20230912, end: 20231012
  3. VALGANCICLOVIR [Concomitant]

REACTIONS (2)
  - Gastrointestinal haemorrhage [None]
  - Death [None]

NARRATIVE: CASE EVENT DATE: 20231130
